FAERS Safety Report 4308647-8 (Version None)
Quarter: 2004Q1

REPORT INFORMATION
  Report Type: 
  Country: None (occurrence: None)
  Receive Date: 20040301
  Receipt Date: 20040213
  Transmission Date: 20041129
  Serious: Yes (Other)
  Sender: FDA-Public Use
  Company Number: A0498149A

PATIENT
  Age: 52 Year
  Sex: Female

DRUGS (7)
  1. NICODERM CQ [Suspect]
     Indication: EX-SMOKER
     Dosage: 21 MG / TRANSDERMAL
     Route: 062
     Dates: start: 20031227
  2. ASPIRIN [Concomitant]
  3. DILTIAZEM HYDROCHLORIDE [Concomitant]
  4. PRAVASTATIN SODIUM [Concomitant]
  5. EZETIMIBE [Concomitant]
  6. CLOPIDOGREL BISULPHATE [Concomitant]
  7. SODIUM RABEPRAZOLE [Concomitant]

REACTIONS (9)
  - APPLICATION SITE ERYTHEMA [None]
  - APPLICATION SITE PRURITUS [None]
  - BLOOD PRESSURE INCREASED [None]
  - BLOOD URINE [None]
  - DECREASED APPETITE [None]
  - FALL [None]
  - INSOMNIA [None]
  - SYNCOPE [None]
  - URTICARIA [None]
